FAERS Safety Report 5493168-X (Version None)
Quarter: 2007Q4

REPORT INFORMATION
  Report Type: 
  Country: None (occurrence: None)
  Receive Date: 20071022
  Receipt Date: 20071022
  Transmission Date: 20080405
  Serious: Yes (Hospitalization, Other)
  Sender: FDA-Public Use
  Company Number: None

PATIENT
  Age: 49 Year
  Sex: Female

DRUGS (4)
  1. BYETTA [Suspect]
     Indication: DIABETES MELLITUS
     Dosage: 5 MCG 2 X DAILY
     Dates: start: 20070801, end: 20070901
  2. LIPITOR [Concomitant]
  3. ALTACE [Concomitant]
  4. TOPROL-XL [Concomitant]

REACTIONS (12)
  - ARTHRALGIA [None]
  - CONJUNCTIVAL DISCOLOURATION [None]
  - DIARRHOEA [None]
  - DRUG INTOLERANCE [None]
  - FATIGUE [None]
  - HYPERHIDROSIS [None]
  - MYALGIA [None]
  - NAUSEA [None]
  - NEURALGIA [None]
  - ONYCHOMADESIS [None]
  - PYREXIA [None]
  - SKIN DISCOLOURATION [None]
